FAERS Safety Report 4785527-5 (Version None)
Quarter: 2005Q3

REPORT INFORMATION
  Report Type: 
  Country: None (occurrence: None)
  Receive Date: 20050929
  Receipt Date: 20050916
  Transmission Date: 20060218
  Serious: Yes (Other)
  Sender: FDA-Public Use
  Company Number: 2005118856

PATIENT
  Age: 65 Year
  Sex: Female
  Weight: 79.3795 kg

DRUGS (4)
  1. XALATAN [Suspect]
     Indication: OCULAR HYPERTENSION
     Dosage: 1.5 MCG (1 DROP, DAILY INTERVAL:  EVERY DAY), OPHTHALMIC
     Route: 047
     Dates: start: 20050624
  2. ALBUTEROL [Concomitant]
  3. ADVAIR DISKUS 100/50 [Concomitant]
  4. PREDNISONE [Concomitant]

REACTIONS (2)
  - EYE PAIN [None]
  - OSTEOPOROSIS [None]
